FAERS Safety Report 8724891 (Version 2)
Quarter: 2015Q2

REPORT INFORMATION
  Report Type: Report from Study
  Country: US (occurrence: US)
  Receive Date: 20120815
  Receipt Date: 20150407
  Transmission Date: 20150821
  Serious: Yes (Other)
  Sender: FDA-Public Use
  Company Number: US-ROCHE-1100619

PATIENT
  Sex: Male

DRUGS (5)
  1. LIDOCAINE DRIP [Concomitant]
     Route: 042
  2. ACTIVASE [Suspect]
     Active Substance: ALTEPLASE
     Indication: ACUTE MYOCARDIAL INFARCTION
     Route: 042
     Dates: start: 19950202
  3. ACTIVASE [Suspect]
     Active Substance: ALTEPLASE
     Route: 042
  4. ACTIVASE [Suspect]
     Active Substance: ALTEPLASE
     Dosage: 2-50MG VIAL
     Route: 042
  5. ACTIVASE [Suspect]
     Active Substance: ALTEPLASE
     Route: 042

REACTIONS (3)
  - Dyspnoea [Unknown]
  - Pain in extremity [Unknown]
  - Chest pain [Unknown]
